FAERS Safety Report 5404841-3 (Version None)
Quarter: 2007Q3

REPORT INFORMATION
  Report Type: 
  Country: None (occurrence: None)
  Receive Date: 20070803
  Receipt Date: 20070727
  Transmission Date: 20080115
  Serious: Yes (Other)
  Sender: FDA-Public Use
  Company Number: PHBS2007JP12364

PATIENT
  Age: 56 Year
  Sex: Male

DRUGS (1)
  1. LAMISIL [Suspect]
     Indication: NAIL TINEA
     Dosage: 125 MG, UNK
     Route: 048
     Dates: start: 20070115, end: 20070711

REACTIONS (1)
  - BLOOD CREATINE PHOSPHOKINASE INCREASED [None]
